FAERS Safety Report 5117781-4 (Version None)
Quarter: 2006Q3

REPORT INFORMATION
  Report Type: 
  Country: None (occurrence: None)
  Receive Date: 20060929
  Receipt Date: 20051012
  Transmission Date: 20061208
  Serious: Yes (Hospitalization, Disabling)
  Sender: FDA-Public Use
  Company Number: PHRM2005FR02698

PATIENT
  Age: 76 Year
  Sex: Female
  Weight: 56 kg

DRUGS (4)
  1. GLEEVEC [Suspect]
     Indication: CHRONIC MYELOID LEUKAEMIA
     Dosage: 300MG,  DAILY
     Route: 048
     Dates: start: 20020522, end: 20030101
  2. GLEEVEC [Suspect]
     Dosage: 200 MG DAILY
     Route: 048
  3. LOXEN [Concomitant]
     Indication: HYPERTENSION
     Route: 048
  4. ASPEGIC 1000 [Concomitant]
     Route: 048

REACTIONS (10)
  - BRAIN SCAN ABNORMAL [None]
  - CEREBRAL DISORDER [None]
  - DIPLOPIA [None]
  - DYSPHAGIA [None]
  - DYSPHONIA [None]
  - EATON-LAMBERT SYNDROME [None]
  - ELECTROMYOGRAM ABNORMAL [None]
  - MUSCULAR WEAKNESS [None]
  - NEUROENDOCRINE CARCINOMA OF THE SKIN [None]
  - SPEECH DISORDER [None]
